FAERS Safety Report 9892182 (Version 2)
Quarter: 2014Q4

REPORT INFORMATION
  Report Type: Spontaneous
  Country: SE (occurrence: SE)
  Receive Date: 20140212
  Receipt Date: 20141031
  Transmission Date: 20150529
  Serious: Yes (Hospitalization)
  Sender: FDA-Public Use
  Company Number: SE-TEVA-460910ISR

PATIENT
  Age: 27 Year
  Sex: Female

DRUGS (4)
  1. ALVEDON [Concomitant]
     Active Substance: ACETAMINOPHEN
  2. DIMOR [Suspect]
     Active Substance: LOPERAMIDE
     Indication: DIARRHOEA
     Dosage: IN THE MORNING
  3. OXASCAND [Concomitant]
     Active Substance: OXAZEPAM
  4. COCILLANA ETYFIN [Concomitant]

REACTIONS (6)
  - Pruritus [Unknown]
  - Urticaria [Unknown]
  - Skin reaction [Unknown]
  - Chest discomfort [Unknown]
  - Hypersensitivity [Unknown]
  - Exposure during pregnancy [Unknown]

NARRATIVE: CASE EVENT DATE: 20131112
